FAERS Safety Report 17197925 (Version 2)
Quarter: 2019Q4

REPORT INFORMATION
  Report Type: Spontaneous
  Country: SE (occurrence: SE)
  Receive Date: 20191225
  Receipt Date: 20191226
  Transmission Date: 20200122
  Serious: Yes (Hospitalization)
  Sender: FDA-Public Use
  Company Number: SE-TEVA-2019-SE-1157175

PATIENT
  Age: 30 Year
  Sex: Male

DRUGS (2)
  1. NAPROXEN. [Suspect]
     Active Substance: NAPROXEN
     Dosage: 8 PCS A 500 MG
     Route: 065
     Dates: start: 20180503, end: 20180503
  2. PROPAVAN [Suspect]
     Active Substance: PROPIOMAZINE
     Dosage: 400 MG
     Route: 048
     Dates: start: 20180503, end: 20180503

REACTIONS (4)
  - Intentional self-injury [Unknown]
  - Intentional overdose [Unknown]
  - Aggression [Unknown]
  - Agitation [Unknown]

NARRATIVE: CASE EVENT DATE: 20180503
